FAERS Safety Report 16868184 (Version 1)
Quarter: 2019Q3

REPORT INFORMATION
  Report Type: Spontaneous
  Country: US (occurrence: US)
  Receive Date: 20190930
  Receipt Date: 20190930
  Transmission Date: 20191005
  Serious: Yes (Life-Threatening, Hospitalization, Other)
  Sender: FDA-Public Use
  Company Number: US-BAYER-2019-176596

PATIENT
  Age: 36 Year
  Sex: Female

DRUGS (1)
  1. ALKA-SELTZER PLUS SORE THROAT RELIEF HONEY LEMON FLAVOR [Suspect]
     Active Substance: ACETAMINOPHEN
     Dosage: UNK

REACTIONS (4)
  - Toxicity to various agents [Unknown]
  - Acute hepatic failure [Unknown]
  - Overdose [Unknown]
  - International normalised ratio increased [Unknown]
